FAERS Safety Report 8057470-X (Version None)
Quarter: 2012Q1

REPORT INFORMATION
  Report Type: 
  Country: None (occurrence: None)
  Receive Date: 20120119
  Receipt Date: 20120117
  Transmission Date: 20120608
  Serious: Yes (Hospitalization)
  Sender: FDA-Public Use
  Company Number: IT-ABBOTT-11P-083-0855112-00

PATIENT
  Sex: Female

DRUGS (2)
  1. CLARITHROMYCIN [Suspect]
     Indication: PHARYNGITIS
     Dosage: TOTAL
     Route: 048
     Dates: start: 20110723, end: 20110723
  2. MEDROL [Suspect]
     Indication: PHARYNGITIS
     Dosage: TOTAL
     Route: 048
     Dates: start: 20110723, end: 20110723

REACTIONS (2)
  - DYSPNOEA [None]
  - ACUTE RESPIRATORY DISTRESS SYNDROME [None]
